FAERS Safety Report 5294643-3 (Version None)
Quarter: 2007Q2

REPORT INFORMATION
  Report Type: 
  Country: None (occurrence: None)
  Receive Date: 20070412
  Receipt Date: 20070402
  Transmission Date: 20071010
  Serious: Yes (Hospitalization)
  Sender: FDA-Public Use
  Company Number: FR-AVENTIS-200711157FR

PATIENT
  Age: 71 Year
  Sex: Female

DRUGS (5)
  1. ARAVA [Suspect]
     Route: 048
     Dates: start: 20040615
  2. CORTANCYL [Suspect]
     Route: 048
  3. ENBREL [Suspect]
     Route: 058
     Dates: start: 20050315, end: 20070306
  4. VOLTAREN [Suspect]
     Route: 048
     Dates: end: 20070309
  5. NEXIUM [Concomitant]
     Route: 048

REACTIONS (2)
  - OSTEITIS [None]
  - OSTEONECROSIS [None]
